FAERS Safety Report 6668670-5 (Version None)
Quarter: 2010Q2

REPORT INFORMATION
  Report Type: 
  Country: None (occurrence: None)
  Receive Date: 20100402
  Receipt Date: 20100319
  Transmission Date: 20101027
  Serious: Yes (Other)
  Sender: FDA-Public Use
  Company Number: 009045

PATIENT
  Age: 69 Year
  Sex: Male

DRUGS (5)
  1. PREDNISOLONE [Suspect]
     Indication: HODGKIN'S DISEASE
  2. CHLORAMBUCIL (CHLORAMBUCIL) [Suspect]
     Indication: HODGKIN'S DISEASE
  3. PROCARBAZINE HYDROCHLORIDE [Suspect]
     Indication: HODGKIN'S DISEASE
  4. VINBLASTINE SULFATE [Suspect]
     Indication: HODGKIN'S DISEASE
  5. CORTICOSTEROID NOS () [Concomitant]

REACTIONS (7)
  - ANAEMIA [None]
  - APLASIA PURE RED CELL [None]
  - ERYTHEMA INFECTIOSUM [None]
  - INTERSTITIAL LUNG DISEASE [None]
  - NIGHT SWEATS [None]
  - RETICULOCYTOPENIA [None]
  - WEIGHT DECREASED [None]
